FAERS Safety Report 7109347-1 (Version None)
Quarter: 2010Q4

REPORT INFORMATION
  Report Type: 
  Country: None (occurrence: None)
  Receive Date: 20101118
  Receipt Date: 20101110
  Transmission Date: 20110411
  Serious: Yes (Death, Other)
  Sender: FDA-Public Use
  Company Number: US-BIOGENIDEC-2010BI039900

PATIENT
  Age: 60 Year
  Sex: Male
  Weight: 90 kg

DRUGS (9)
  1. TYSABRI [Suspect]
     Indication: MULTIPLE SCLEROSIS
     Route: 042
     Dates: start: 20080708, end: 20101028
  2. BACLOFEN [Concomitant]
     Indication: MULTIPLE SCLEROSIS
  3. HALCION [Concomitant]
     Indication: MULTIPLE SCLEROSIS
  4. FLOMAX [Concomitant]
     Indication: MULTIPLE SCLEROSIS
  5. NEURONTIN [Concomitant]
     Indication: MULTIPLE SCLEROSIS
  6. ZOLOFT [Concomitant]
     Indication: MULTIPLE SCLEROSIS
  7. ANTIDEPRESSANT (NOS) [Concomitant]
     Indication: MULTIPLE SCLEROSIS
  8. ZOCOR [Concomitant]
     Indication: PROPHYLAXIS
  9. EXTAMAX SUPPLEMENT [Concomitant]
     Dates: start: 20100901

REACTIONS (4)
  - COGNITIVE DISORDER [None]
  - DEATH [None]
  - GAIT DISTURBANCE [None]
  - MYOCARDIAL INFARCTION [None]
